FAERS Safety Report 5206934-2 (Version None)
Quarter: 2007Q1

REPORT INFORMATION
  Report Type: 
  Country: None (occurrence: None)
  Receive Date: 20070112
  Receipt Date: 20070102
  Transmission Date: 20070707
  Serious: Yes (Other)
  Sender: FDA-Public Use
  Company Number: PHNU2006DE02467

PATIENT
  Sex: Male

DRUGS (2)
  1. DESFERAL [Suspect]
     Indication: HAEMOSIDEROSIS
     Dosage: 2 G, QW5
     Route: 058
     Dates: start: 20020101
  2. ALLOPURINOL TAB [Concomitant]
     Route: 048

REACTIONS (2)
  - LEUKOCYTOSIS [None]
  - PLATELET COUNT INCREASED [None]
